FAERS Safety Report 26116702 (Version 3)
Quarter: 2025Q4

REPORT INFORMATION
  Report Type: Spontaneous
  Country: GB (occurrence: GB)
  Receive Date: 20251203
  Receipt Date: 20251223
  Transmission Date: 20260118
  Serious: Yes (Congenital Anomaly, Other)
  Sender: MYLAN
  Company Number: None

PATIENT
  Age: 37 Year
  Sex: Female
  Weight: 80 kg

DRUGS (72)
  1. MIRTAZAPINE [Suspect]
     Active Substance: MIRTAZAPINE
     Indication: Depression
     Dosage: 45 MILLIGRAM, PM (AT NIGHT)
     Dates: start: 20220615
  2. MIRTAZAPINE [Suspect]
     Active Substance: MIRTAZAPINE
     Dosage: 45 MILLIGRAM, PM (AT NIGHT)
     Route: 065
     Dates: start: 20220615
  3. MIRTAZAPINE [Suspect]
     Active Substance: MIRTAZAPINE
     Dosage: 45 MILLIGRAM, PM (AT NIGHT)
     Route: 065
     Dates: start: 20220615
  4. MIRTAZAPINE [Suspect]
     Active Substance: MIRTAZAPINE
     Dosage: 45 MILLIGRAM, PM (AT NIGHT)
     Dates: start: 20220615
  5. DULOXETINE [Suspect]
     Active Substance: DULOXETINE
     Indication: Depression
     Dosage: 60 MILLIGRAM, QD (DAILY)
     Dates: start: 20230223
  6. DULOXETINE [Suspect]
     Active Substance: DULOXETINE
     Dosage: 60 MILLIGRAM, QD (DAILY)
     Route: 065
     Dates: start: 20230223
  7. DULOXETINE [Suspect]
     Active Substance: DULOXETINE
     Dosage: 60 MILLIGRAM, QD (DAILY)
     Route: 065
     Dates: start: 20230223
  8. DULOXETINE [Suspect]
     Active Substance: DULOXETINE
     Dosage: 60 MILLIGRAM, QD (DAILY)
     Dates: start: 20230223
  9. QUETIAPINE [Suspect]
     Active Substance: QUETIAPINE
     Indication: Anxiety
     Dosage: 50 MILLIGRAM, PM (AT NIGHT)
     Dates: start: 20150120
  10. QUETIAPINE [Suspect]
     Active Substance: QUETIAPINE
     Dosage: 50 MILLIGRAM, PM (AT NIGHT)
     Route: 065
     Dates: start: 20150120
  11. QUETIAPINE [Suspect]
     Active Substance: QUETIAPINE
     Dosage: 50 MILLIGRAM, PM (AT NIGHT)
     Route: 065
     Dates: start: 20150120
  12. QUETIAPINE [Suspect]
     Active Substance: QUETIAPINE
     Dosage: 50 MILLIGRAM, PM (AT NIGHT)
     Dates: start: 20150120
  13. BECLOMETHASONE DIPROPIONATE [Suspect]
     Active Substance: BECLOMETHASONE DIPROPIONATE
     Indication: Asthma
     Dosage: 200 MICROGRAM, BID (TWICE A DAY)
     Dates: start: 20240528
  14. BECLOMETHASONE DIPROPIONATE [Suspect]
     Active Substance: BECLOMETHASONE DIPROPIONATE
     Dosage: 200 MICROGRAM, BID (TWICE A DAY)
     Route: 065
     Dates: start: 20240528
  15. BECLOMETHASONE DIPROPIONATE [Suspect]
     Active Substance: BECLOMETHASONE DIPROPIONATE
     Dosage: 200 MICROGRAM, BID (TWICE A DAY)
     Route: 065
     Dates: start: 20240528
  16. BECLOMETHASONE DIPROPIONATE [Suspect]
     Active Substance: BECLOMETHASONE DIPROPIONATE
     Dosage: 200 MICROGRAM, BID (TWICE A DAY)
     Dates: start: 20240528
  17. VITAMIN D3 [Suspect]
     Active Substance: CHOLECALCIFEROL
     Indication: Pregnancy
     Dosage: 400 DOSAGE FORM, QD (400 UNITS ONCE DAILY)
     Dates: start: 20250320
  18. VITAMIN D3 [Suspect]
     Active Substance: CHOLECALCIFEROL
     Dosage: 400 DOSAGE FORM, QD (400 UNITS ONCE DAILY)
     Route: 065
     Dates: start: 20250320
  19. VITAMIN D3 [Suspect]
     Active Substance: CHOLECALCIFEROL
     Dosage: 400 DOSAGE FORM, QD (400 UNITS ONCE DAILY)
     Route: 065
     Dates: start: 20250320
  20. VITAMIN D3 [Suspect]
     Active Substance: CHOLECALCIFEROL
     Dosage: 400 DOSAGE FORM, QD (400 UNITS ONCE DAILY)
     Dates: start: 20250320
  21. ENOXAPARIN SODIUM [Suspect]
     Active Substance: ENOXAPARIN SODIUM
     Indication: Pregnancy with advanced maternal age
     Dosage: 40 MILLIGRAM, QD (DAILY, IN 2ND AND 3RD TRIMESTERS)
     Dates: start: 20250514
  22. ENOXAPARIN SODIUM [Suspect]
     Active Substance: ENOXAPARIN SODIUM
     Dosage: 40 MILLIGRAM, QD (DAILY, IN 2ND AND 3RD TRIMESTERS)
     Route: 065
     Dates: start: 20250514
  23. ENOXAPARIN SODIUM [Suspect]
     Active Substance: ENOXAPARIN SODIUM
     Dosage: 40 MILLIGRAM, QD (DAILY, IN 2ND AND 3RD TRIMESTERS)
     Route: 065
     Dates: start: 20250514
  24. ENOXAPARIN SODIUM [Suspect]
     Active Substance: ENOXAPARIN SODIUM
     Dosage: 40 MILLIGRAM, QD (DAILY, IN 2ND AND 3RD TRIMESTERS)
     Dates: start: 20250514
  25. LACTULOSE [Suspect]
     Active Substance: LACTULOSE
     Indication: Constipation
     Dosage: 2.5 MILLILITER, BID (TWICE A DAY)
     Dates: start: 20250409
  26. LACTULOSE [Suspect]
     Active Substance: LACTULOSE
     Dosage: 2.5 MILLILITER, BID (TWICE A DAY)
     Route: 065
     Dates: start: 20250409
  27. LACTULOSE [Suspect]
     Active Substance: LACTULOSE
     Dosage: 2.5 MILLILITER, BID (TWICE A DAY)
     Route: 065
     Dates: start: 20250409
  28. LACTULOSE [Suspect]
     Active Substance: LACTULOSE
     Dosage: 2.5 MILLILITER, BID (TWICE A DAY)
     Dates: start: 20250409
  29. POLYETHYLENE GLYCOLS [Suspect]
     Active Substance: POLYETHYLENE GLYCOLS
     Indication: Constipation
     Dosage: UNK UNK, QD (1-2 SACHETS DAILY, IN 2ND AND 3RD TRIMESTERS)
     Dates: start: 20250409
  30. POLYETHYLENE GLYCOLS [Suspect]
     Active Substance: POLYETHYLENE GLYCOLS
     Dosage: UNK UNK, QD (1-2 SACHETS DAILY, IN 2ND AND 3RD TRIMESTERS)
     Route: 065
     Dates: start: 20250409
  31. POLYETHYLENE GLYCOLS [Suspect]
     Active Substance: POLYETHYLENE GLYCOLS
     Dosage: UNK UNK, QD (1-2 SACHETS DAILY, IN 2ND AND 3RD TRIMESTERS)
     Route: 065
     Dates: start: 20250409
  32. POLYETHYLENE GLYCOLS [Suspect]
     Active Substance: POLYETHYLENE GLYCOLS
     Dosage: UNK UNK, QD (1-2 SACHETS DAILY, IN 2ND AND 3RD TRIMESTERS)
     Dates: start: 20250409
  33. DISODIUM HYDROGEN CITRATE\SODIUM LAURYL SULFOACETATE\SORBIC ACID [Suspect]
     Active Substance: DISODIUM HYDROGEN CITRATE\SODIUM LAURYL SULFOACETATE\SORBIC ACID
     Indication: Constipation
     Dosage: 1 DOSAGE FORM, PRN (1 AS NEEDED RECTALLY, 3RD TRIMESTER ONLY)
  34. DISODIUM HYDROGEN CITRATE\SODIUM LAURYL SULFOACETATE\SORBIC ACID [Suspect]
     Active Substance: DISODIUM HYDROGEN CITRATE\SODIUM LAURYL SULFOACETATE\SORBIC ACID
     Dosage: 1 DOSAGE FORM, PRN (1 AS NEEDED RECTALLY, 3RD TRIMESTER ONLY)
     Route: 054
  35. DISODIUM HYDROGEN CITRATE\SODIUM LAURYL SULFOACETATE\SORBIC ACID [Suspect]
     Active Substance: DISODIUM HYDROGEN CITRATE\SODIUM LAURYL SULFOACETATE\SORBIC ACID
     Dosage: 1 DOSAGE FORM, PRN (1 AS NEEDED RECTALLY, 3RD TRIMESTER ONLY)
     Route: 054
  36. DISODIUM HYDROGEN CITRATE\SODIUM LAURYL SULFOACETATE\SORBIC ACID [Suspect]
     Active Substance: DISODIUM HYDROGEN CITRATE\SODIUM LAURYL SULFOACETATE\SORBIC ACID
     Dosage: 1 DOSAGE FORM, PRN (1 AS NEEDED RECTALLY, 3RD TRIMESTER ONLY)
  37. OMEPRAZOLE [Suspect]
     Active Substance: OMEPRAZOLE
     Indication: Product used for unknown indication
     Dosage: 40 MILLIGRAM, QD (DAILY)
     Dates: start: 20240731
  38. OMEPRAZOLE [Suspect]
     Active Substance: OMEPRAZOLE
     Dosage: 40 MILLIGRAM, QD (DAILY)
     Route: 065
     Dates: start: 20240731
  39. OMEPRAZOLE [Suspect]
     Active Substance: OMEPRAZOLE
     Dosage: 40 MILLIGRAM, QD (DAILY)
     Route: 065
     Dates: start: 20240731
  40. OMEPRAZOLE [Suspect]
     Active Substance: OMEPRAZOLE
     Dosage: 40 MILLIGRAM, QD (DAILY)
     Dates: start: 20240731
  41. SENNA [Suspect]
     Active Substance: SENNOSIDES
     Indication: Constipation
     Dosage: 15 MILLIGRAM, PRN (AT NIGHT WHEN NEEDED, IN 1ST AND 3RD TRIMESTER)
  42. SENNA [Suspect]
     Active Substance: SENNOSIDES
     Dosage: 15 MILLIGRAM, PRN (AT NIGHT WHEN NEEDED, IN 1ST AND 3RD TRIMESTER)
     Route: 065
  43. SENNA [Suspect]
     Active Substance: SENNOSIDES
     Dosage: 15 MILLIGRAM, PRN (AT NIGHT WHEN NEEDED, IN 1ST AND 3RD TRIMESTER)
     Route: 065
  44. SENNA [Suspect]
     Active Substance: SENNOSIDES
     Dosage: 15 MILLIGRAM, PRN (AT NIGHT WHEN NEEDED, IN 1ST AND 3RD TRIMESTER)
  45. ALBUTEROL [Suspect]
     Active Substance: ALBUTEROL
     Indication: Asthma
     Dosage: UNK UNK, PRN (2 PUFFS AS NEEDED)
  46. ALBUTEROL [Suspect]
     Active Substance: ALBUTEROL
     Dosage: UNK UNK, PRN (2 PUFFS AS NEEDED)
     Route: 065
  47. ALBUTEROL [Suspect]
     Active Substance: ALBUTEROL
     Dosage: UNK UNK, PRN (2 PUFFS AS NEEDED)
     Route: 065
  48. ALBUTEROL [Suspect]
     Active Substance: ALBUTEROL
     Dosage: UNK UNK, PRN (2 PUFFS AS NEEDED)
  49. AMOXICILLIN [Suspect]
     Active Substance: AMOXICILLIN
     Indication: Upper respiratory tract infection
     Dosage: 1 DOSAGE FORM, TID (1 THREE TIMES A DAY FOR 1 WEEK)
     Dates: start: 20250925, end: 20251002
  50. AMOXICILLIN [Suspect]
     Active Substance: AMOXICILLIN
     Dosage: 1 DOSAGE FORM, TID (1 THREE TIMES A DAY FOR 1 WEEK)
     Route: 065
     Dates: start: 20250925, end: 20251002
  51. AMOXICILLIN [Suspect]
     Active Substance: AMOXICILLIN
     Dosage: 1 DOSAGE FORM, TID (1 THREE TIMES A DAY FOR 1 WEEK)
     Route: 065
     Dates: start: 20250925, end: 20251002
  52. AMOXICILLIN [Suspect]
     Active Substance: AMOXICILLIN
     Dosage: 1 DOSAGE FORM, TID (1 THREE TIMES A DAY FOR 1 WEEK)
     Dates: start: 20250925, end: 20251002
  53. CLOTRIMAZOLE [Suspect]
     Active Substance: CLOTRIMAZOLE
     Indication: Vulvovaginal candidiasis
     Dosage: 200 MILLIGRAM, PM (AT NIGHT FOR 6 NIGHTS, IN 2ND AND 3RD TRIMESTERS)
     Dates: start: 20250804, end: 20250811
  54. CLOTRIMAZOLE [Suspect]
     Active Substance: CLOTRIMAZOLE
     Dosage: 200 MILLIGRAM, PM (AT NIGHT FOR 6 NIGHTS, IN 2ND AND 3RD TRIMESTERS)
     Route: 065
     Dates: start: 20250804, end: 20250811
  55. CLOTRIMAZOLE [Suspect]
     Active Substance: CLOTRIMAZOLE
     Dosage: 200 MILLIGRAM, PM (AT NIGHT FOR 6 NIGHTS, IN 2ND AND 3RD TRIMESTERS)
     Route: 065
     Dates: start: 20250804, end: 20250811
  56. CLOTRIMAZOLE [Suspect]
     Active Substance: CLOTRIMAZOLE
     Dosage: 200 MILLIGRAM, PM (AT NIGHT FOR 6 NIGHTS, IN 2ND AND 3RD TRIMESTERS)
     Dates: start: 20250804, end: 20250811
  57. FOLIC ACID [Suspect]
     Active Substance: FOLIC ACID
     Indication: Vitamin supplementation
     Dosage: 400 MICROGRAM
  58. FOLIC ACID [Suspect]
     Active Substance: FOLIC ACID
     Dosage: 400 MICROGRAM
     Route: 065
  59. FOLIC ACID [Suspect]
     Active Substance: FOLIC ACID
     Dosage: 400 MICROGRAM
     Route: 065
  60. FOLIC ACID [Suspect]
     Active Substance: FOLIC ACID
     Dosage: 400 MICROGRAM
  61. ACETAMINOPHEN [Suspect]
     Active Substance: ACETAMINOPHEN
     Indication: Product used for unknown indication
     Dosage: UNK (IN 1ST TRIMESTER ONLY)
  62. ACETAMINOPHEN [Suspect]
     Active Substance: ACETAMINOPHEN
     Dosage: UNK (IN 1ST TRIMESTER ONLY)
     Route: 065
  63. ACETAMINOPHEN [Suspect]
     Active Substance: ACETAMINOPHEN
     Dosage: UNK (IN 1ST TRIMESTER ONLY)
     Route: 065
  64. ACETAMINOPHEN [Suspect]
     Active Substance: ACETAMINOPHEN
     Dosage: UNK (IN 1ST TRIMESTER ONLY)
  65. NITROFURANTOIN [Suspect]
     Active Substance: NITROFURANTOIN
     Indication: Product used for unknown indication
     Dosage: UNK (IN 1ST TRIMESTER ONLY)
  66. NITROFURANTOIN [Suspect]
     Active Substance: NITROFURANTOIN
     Dosage: UNK (IN 1ST TRIMESTER ONLY)
     Route: 065
  67. NITROFURANTOIN [Suspect]
     Active Substance: NITROFURANTOIN
     Dosage: UNK (IN 1ST TRIMESTER ONLY)
     Route: 065
  68. NITROFURANTOIN [Suspect]
     Active Substance: NITROFURANTOIN
     Dosage: UNK (IN 1ST TRIMESTER ONLY)
  69. AMOXICILLIN [Concomitant]
     Active Substance: AMOXICILLIN
     Dosage: UNK
  70. AMOXICILLIN [Concomitant]
     Active Substance: AMOXICILLIN
     Dosage: UNK
     Route: 065
  71. AMOXICILLIN [Concomitant]
     Active Substance: AMOXICILLIN
     Dosage: UNK
     Route: 065
  72. AMOXICILLIN [Concomitant]
     Active Substance: AMOXICILLIN
     Dosage: UNK

REACTIONS (3)
  - Cleft palate [Not Recovered/Not Resolved]
  - Maternal exposure during pregnancy [Unknown]
  - Foetal exposure during pregnancy [Unknown]

NARRATIVE: CASE EVENT DATE: 20251101
